FAERS Safety Report 11915721 (Version 1)
Quarter: 2016Q1

REPORT INFORMATION
  Report Type: Report from Study
  Country: NL (occurrence: NL)
  Receive Date: 20160114
  Receipt Date: 20160114
  Transmission Date: 20160526
  Serious: Yes (Life-Threatening)
  Sender: FDA-Public Use
  Company Number: NL-ROCHE-ITM201410IM007096

PATIENT
  Age: 69 Year
  Sex: Female

DRUGS (2)
  1. ESBRIET [Suspect]
     Active Substance: PIRFENIDONE
     Indication: PULMONARY FIBROSIS
     Dosage: 3 CAPSULES THRICE A DAY
     Route: 048
     Dates: start: 20130810, end: 20140911
  2. N-ACETYLCYSTEINE [Concomitant]
     Active Substance: ACETYLCYSTEINE
     Route: 065
     Dates: start: 20130810

REACTIONS (1)
  - Terminal state [Not Recovered/Not Resolved]

NARRATIVE: CASE EVENT DATE: 20140911
